FAERS Safety Report 24835074 (Version 1)
Quarter: 2025Q1

REPORT INFORMATION
  Report Type: Report from Study
  Country: US (occurrence: US)
  Receive Date: 20250113
  Receipt Date: 20250113
  Transmission Date: 20250408
  Serious: Yes (Other)
  Sender: NOVARTIS
  Company Number: US-002147023-NVSC2025US002539

PATIENT
  Age: 76 Year
  Sex: Female

DRUGS (2)
  1. LEQVIO [Suspect]
     Active Substance: INCLISIRAN SODIUM
     Indication: Product used for unknown indication
     Route: 058
     Dates: start: 20240916
  2. LEQVIO [Suspect]
     Active Substance: INCLISIRAN SODIUM
     Route: 058

REACTIONS (5)
  - Pulmonary congestion [Recovered/Resolved]
  - Neck pain [Unknown]
  - Weight decreased [Unknown]
  - Injection site paraesthesia [Unknown]
  - Injection site pain [Unknown]

NARRATIVE: CASE EVENT DATE: 20241217
